FAERS Safety Report 16297716 (Version 3)
Quarter: 2020Q1

REPORT INFORMATION
  Report Type: Spontaneous
  Country: US (occurrence: US)
  Receive Date: 20190510
  Receipt Date: 20200207
  Transmission Date: 20200409
  Serious: No
  Sender: FDA-Public Use
  Company Number: US-TAKEDA-2019TUS027240

PATIENT
  Sex: Female
  Weight: 72 kg

DRUGS (2)
  1. REVLIMID [Concomitant]
     Active Substance: LENALIDOMIDE
     Dosage: UNK
     Route: 065
     Dates: start: 201707
  2. NINLARO [Suspect]
     Active Substance: IXAZOMIB CITRATE
     Indication: PLASMA CELL MYELOMA
     Dosage: 4 MILLIGRAM
     Route: 048
     Dates: start: 20170717

REACTIONS (5)
  - Infection [Unknown]
  - Colitis ulcerative [Unknown]
  - White blood cell count decreased [Unknown]
  - Decubitus ulcer [Unknown]
  - Crohn^s disease [Unknown]
